FAERS Safety Report 6380342-3 (Version None)
Quarter: 2009Q3

REPORT INFORMATION
  Report Type: 
  Country: None (occurrence: None)
  Receive Date: 20090929
  Receipt Date: 20090921
  Transmission Date: 20100115
  Serious: Yes (Life-Threatening, Congenital Anomaly, Other)
  Sender: FDA-Public Use
  Company Number: CA-BAYER-200930636NA

PATIENT
  Age: 24 Year
  Sex: Female
  Weight: 56 kg

DRUGS (3)
  1. MIRENA [Suspect]
     Indication: DRUG USE FOR UNKNOWN INDICATION
     Dosage: AS USED: 20 ?G
     Route: 015
     Dates: start: 20090101
  2. TEGRETOL [Concomitant]
     Indication: EPILEPSY
     Route: 048
  3. RIVOTRIL [Concomitant]

REACTIONS (6)
  - CONVULSION [None]
  - DYSARTHRIA [None]
  - EPILEPSY [None]
  - HEAD INJURY [None]
  - LOSS OF CONSCIOUSNESS [None]
  - TONIC CLONIC MOVEMENTS [None]
